FAERS Safety Report 10651726 (Version 1)
Quarter: 2014Q4

REPORT INFORMATION
  Report Type: Spontaneous
  Country: MX (occurrence: None)
  Receive Date: 20141211
  Receipt Date: 20141211
  Transmission Date: 20150529
  Serious: Yes (Hospitalization)
  Sender: FDA-Public Use
  Company Number: 2015VID00010

PATIENT
  Age: 10 Year
  Sex: Male
  Weight: 23 kg

DRUGS (3)
  1. SULFAMETHOXAZOLE AND TRIMETHOPRIM [Concomitant]
     Active Substance: SULFAMETHOXAZOLE\TRIMETHOPRIM
  2. INTERFERON GAMMA-1B [Suspect]
     Active Substance: INTERFERON GAMMA-1B
     Indication: CHRONIC GRANULOMATOUS DISEASE
     Dates: start: 20100301
  3. ITRACONAZOLE. [Concomitant]
     Active Substance: ITRACONAZOLE

REACTIONS (6)
  - Oropharyngeal pain [None]
  - Rhinorrhoea [None]
  - Bronchopulmonary aspergillosis [None]
  - Pharyngitis [None]
  - Pyrexia [None]
  - Pneumonia [None]

NARRATIVE: CASE EVENT DATE: 20140605
